FAERS Safety Report 10513694 (Version 2)
Quarter: 2014Q4

REPORT INFORMATION
  Report Type: Report from Study
  Country: GB (occurrence: GB)
  Receive Date: 20141013
  Receipt Date: 20141022
  Transmission Date: 20150528
  Serious: Yes (Other)
  Sender: FDA-Public Use
  Company Number: GB-TEVA-511670ISR

PATIENT
  Age: 40 Year
  Sex: Male
  Weight: 78.2 kg

DRUGS (1)
  1. COPAXONE [Suspect]
     Active Substance: GLATIRAMER ACETATE
     Dosage: 20 MILLIGRAM DAILY;
     Route: 058
     Dates: start: 20090910, end: 20140925

REACTIONS (3)
  - Injection site necrosis [Unknown]
  - Localised infection [Not Recovered/Not Resolved]
  - Debridement [Not Recovered/Not Resolved]

NARRATIVE: CASE EVENT DATE: 20140801
